FAERS Safety Report 12265053 (Version 1)
Quarter: 2016Q2

REPORT INFORMATION
  Report Type: Spontaneous
  Country: FR (occurrence: FR)
  Receive Date: 20160413
  Receipt Date: 20160413
  Transmission Date: 20160815
  Serious: Yes (Other)
  Sender: FDA-Public Use
  Company Number: PHHY2016FR047470

PATIENT
  Sex: Male

DRUGS (4)
  1. BUPRENORPHINE SANDOZ [Suspect]
     Active Substance: BUPRENORPHINE
     Indication: PRODUCT SUBSTITUTION
     Dosage: 12 MG, QD
     Route: 065
  2. BUPRENORPHINE SANDOZ [Interacting]
     Active Substance: BUPRENORPHINE
     Dosage: 16 MG, UNK
     Route: 065
  3. NALMEFENE [Concomitant]
     Active Substance: NALMEFENE
     Indication: ALCOHOL PROBLEM
     Route: 065
  4. ACAMPROSATE CALCIUM. [Concomitant]
     Active Substance: ACAMPROSATE CALCIUM
     Indication: ALCOHOL PROBLEM
     Route: 065

REACTIONS (6)
  - Aggression [Unknown]
  - Vein disorder [Unknown]
  - Intentional overdose [Unknown]
  - Drug dependence [Unknown]
  - Substance abuser [Unknown]
  - Drug interaction [Unknown]
